FAERS Safety Report 14157326 (Version 2)
Quarter: 2017Q4

REPORT INFORMATION
  Report Type: Spontaneous
  Country: US (occurrence: US)
  Receive Date: 20171103
  Receipt Date: 20171205
  Transmission Date: 20180321
  Serious: No
  Sender: FDA-Public Use
  Company Number: US-GLAXOSMITHKLINE-US2017167405

PATIENT
  Age: 58 Year
  Sex: Female

DRUGS (4)
  1. NYSTATIN. [Concomitant]
     Active Substance: NYSTATIN
  2. GENTIAN VIOLET [Concomitant]
     Active Substance: GENTIAN VIOLET
  3. SPIRIVA [Concomitant]
     Active Substance: TIOTROPIUM BROMIDE MONOHYDRATE
  4. ADVAIR DISKUS [Suspect]
     Active Substance: FLUTICASONE PROPIONATE\SALMETEROL XINAFOATE
     Indication: CHRONIC OBSTRUCTIVE PULMONARY DISEASE
     Dosage: 1 PUFF(S), BID
     Dates: start: 201506

REACTIONS (9)
  - Dyspnoea [Unknown]
  - Productive cough [Unknown]
  - Drug ineffective [Unknown]
  - Lung disorder [Unknown]
  - Nocturnal dyspnoea [Unknown]
  - Oral pain [Unknown]
  - Product quality issue [Unknown]
  - Oral candidiasis [Unknown]
  - Wrong technique in device usage process [Unknown]

NARRATIVE: CASE EVENT DATE: 201508
